FAERS Safety Report 11642166 (Version 2)
Quarter: 2015Q4

REPORT INFORMATION
  Report Type: Report from Study
  Country: JP (occurrence: JP)
  Receive Date: 20151019
  Receipt Date: 20151230
  Transmission Date: 20160304
  Serious: Yes (Death, Other)
  Sender: FDA-Public Use
  Company Number: JP-009507513-1311JPN000448

PATIENT
  Age: 75 Year
  Sex: Male
  Weight: 55 kg

DRUGS (28)
  1. TEMOZOLOMIDE. [Suspect]
     Active Substance: TEMOZOLOMIDE
     Dosage: 200 MG/M2, QD
     Route: 041
     Dates: start: 20140331, end: 20140404
  2. TEMOZOLOMIDE. [Suspect]
     Active Substance: TEMOZOLOMIDE
     Dosage: 200 MG/M2, QD
     Route: 041
     Dates: start: 20140428, end: 20140502
  3. TEMOZOLOMIDE. [Suspect]
     Active Substance: TEMOZOLOMIDE
     Dosage: 200 MG/M2, QD
     Route: 041
     Dates: start: 20131202, end: 20131206
  4. TEMOZOLOMIDE. [Suspect]
     Active Substance: TEMOZOLOMIDE
     Dosage: 200 MG/M2, QD
     Route: 041
     Dates: start: 20140623, end: 20140627
  5. FERON [Suspect]
     Active Substance: INTERFERON BETA
     Indication: BRAIN NEOPLASM
     Dosage: DAILY DOSE UNKNOWN
     Route: 042
     Dates: start: 20130904, end: 20130904
  6. REFLEX [Concomitant]
     Active Substance: MIRTAZAPINE
     Dosage: DAILY DOSE UNKNOWN
     Route: 048
  7. CALONAL [Concomitant]
     Active Substance: ACETAMINOPHEN
     Indication: PROPHYLAXIS
     Dosage: DAILY DOSE UNKNOWN, FORMULATION PERORAL PREPARATIONS
     Route: 048
     Dates: start: 20130904, end: 20130904
  8. TEMOZOLOMIDE. [Suspect]
     Active Substance: TEMOZOLOMIDE
     Dosage: 200 MG/M2, QD
     Route: 041
     Dates: start: 20140526, end: 20140530
  9. CIMETIDINE [Concomitant]
     Active Substance: CIMETIDINE
     Indication: PROPHYLAXIS
     Dosage: DAILY DOSE UNKNOWN
     Route: 048
  10. NASEA [Concomitant]
     Active Substance: RAMOSETRON HYDROCHLORIDE
     Indication: PROPHYLAXIS
     Dosage: DAILY DOSAGE UNKNOWN, FORMULATION PERORAL PREPARATIONS
     Route: 048
     Dates: start: 20130904, end: 20140627
  11. SYMMETREL [Concomitant]
     Active Substance: AMANTADINE HYDROCHLORIDE
     Dosage: DAILY DOSE UNKNOWN, FORMULATION PERORAL PREPARATIONS
     Route: 048
     Dates: start: 20130909, end: 20131128
  12. TEMOZOLOMIDE. [Suspect]
     Active Substance: TEMOZOLOMIDE
     Indication: GLIOBLASTOMA MULTIFORME
     Dosage: 150 MG/SQM, QD
     Route: 041
     Dates: start: 20130904, end: 20130908
  13. TEMOZOLOMIDE. [Suspect]
     Active Substance: TEMOZOLOMIDE
     Dosage: 150 MG/SQM, QD
     Route: 041
     Dates: start: 20131010, end: 20131014
  14. HYSERENIN FINE GRANULES 20% [Concomitant]
     Dosage: DAILY DOSE UNKNOWN
     Route: 048
     Dates: end: 20141114
  15. RHYTHMY [Concomitant]
     Active Substance: RILMAZAFONE HYDROCHLORIDE
     Dosage: DAILY DOSE UNKNOWN, FORMULATION PERORAL PREPARATIONS
     Route: 048
     Dates: end: 20131204
  16. GRAMALIL [Concomitant]
     Active Substance: TIAPRIDE HYDROCHLORIDE
     Dosage: DAILY DOSE UNKNOWN, FORMULATION PERORAL PREPARATIONS
     Route: 048
     Dates: start: 20130906, end: 20130918
  17. LACTATED RINGERS [Concomitant]
     Active Substance: CALCIUM CHLORIDE\POTASSIUM CHLORIDE\SODIUM CHLORIDE\SODIUM LACTATE
     Dosage: DAILY DOSAGE UNKNOWN
     Route: 041
     Dates: start: 20130904, end: 20131117
  18. TEMOZOLOMIDE. [Suspect]
     Active Substance: TEMOZOLOMIDE
     Dosage: 200 MG/M2, QD
     Route: 041
     Dates: start: 20140303, end: 20140307
  19. ROZEREM [Concomitant]
     Active Substance: RAMELTEON
     Dosage: DAILY DOSE UNKNOWN
     Route: 048
  20. LENDORMIN [Concomitant]
     Active Substance: BROTIZOLAM
     Dosage: DAILY DOSE UNKNOWN, FORMULATION PERORAL PREPARATIONS
     Route: 048
     Dates: start: 20130906, end: 20131224
  21. RESLIN TABLETS 50 [Concomitant]
     Active Substance: TRAZODONE HYDROCHLORIDE
     Dosage: DAILY DOSAGE UNKNOWN
     Route: 048
     Dates: start: 20130907, end: 20130918
  22. TEMOZOLOMIDE. [Suspect]
     Active Substance: TEMOZOLOMIDE
     Dosage: 200 MG/M2, QD
     Route: 041
     Dates: start: 20131105, end: 20131109
  23. TEMOZOLOMIDE. [Suspect]
     Active Substance: TEMOZOLOMIDE
     Dosage: 200 MG/M2, QD
     Route: 041
     Dates: start: 20140106, end: 20140110
  24. KEPPRA [Concomitant]
     Active Substance: LEVETIRACETAM
     Dosage: DAILY DOSE UNKNOWN
     Route: 048
     Dates: end: 20140825
  25. TEMOZOLOMIDE. [Suspect]
     Active Substance: TEMOZOLOMIDE
     Dosage: 200 MG/M2, QD
     Route: 041
     Dates: start: 20140203, end: 20140207
  26. TELEMINSOFT [Concomitant]
     Dosage: DAILY DOSE UNKNOWN
     Route: 050
     Dates: end: 20140825
  27. MAGMITT [Concomitant]
     Active Substance: MAGNESIUM OXIDE
     Dosage: DAILY DOSE UNKNOWN
     Route: 048
  28. WARFARIN POTASSIUM [Concomitant]
     Active Substance: WARFARIN POTASSIUM
     Dosage: DAILY DOSE UNKNOWN, FORMULATION PERORAL PREPARATIONS
     Route: 048
     Dates: end: 20130923

REACTIONS (3)
  - Hepatic function abnormal [Recovered/Resolved]
  - Pyrexia [Unknown]
  - Disease progression [Fatal]

NARRATIVE: CASE EVENT DATE: 20130911
